FAERS Safety Report 16886859 (Version 1)
Quarter: 2019Q4

REPORT INFORMATION
  Report Type: Spontaneous
  Country: US (occurrence: US)
  Receive Date: 20191004
  Receipt Date: 20191004
  Transmission Date: 20200122
  Serious: No
  Sender: FDA-Public Use
  Company Number: US-SUNOVION-2019SUN004023

PATIENT
  Sex: Female

DRUGS (2)
  1. ABILIFY [Concomitant]
     Active Substance: ARIPIPRAZOLE
     Dosage: UNK, HS
  2. LUNESTA [Suspect]
     Active Substance: ESZOPICLONE
     Dosage: UNK UNK, HS
     Route: 048

REACTIONS (1)
  - Drug ineffective [Unknown]
